FAERS Safety Report 7440074-7 (Version None)
Quarter: 2011Q2

REPORT INFORMATION
  Report Type: 
  Country: None (occurrence: None)
  Receive Date: 20110427
  Receipt Date: 20110418
  Transmission Date: 20111010
  Serious: Yes (Other)
  Sender: FDA-Public Use
  Company Number: AT-TEVA-277870ISR

PATIENT
  Age: 63 Year
  Sex: Male

DRUGS (1)
  1. CYCLOSPORINE [Suspect]
     Indication: HEART TRANSPLANT

REACTIONS (1)
  - OESOPHAGEAL POLYP [None]
